FAERS Safety Report 23930063 (Version 1)
Quarter: 2024Q2

REPORT INFORMATION
  Report Type: Spontaneous
  Country: US (occurrence: US)
  Receive Date: 20240601
  Receipt Date: 20240601
  Transmission Date: 20240716
  Serious: No
  Sender: FDA-Public Use
  Company Number: US-AMGEN-USASP2024105242

PATIENT
  Age: 82 Year
  Sex: Male

DRUGS (3)
  1. TAVNEOS [Suspect]
     Active Substance: AVACOPAN
     Indication: Anti-neutrophil cytoplasmic antibody positive vasculitis
     Dosage: UNK,
     Route: 065
     Dates: start: 20240520
  2. RITUXAN [Concomitant]
     Active Substance: RITUXIMAB
     Dosage: UNK
     Route: 065
  3. PREDNISONE [Concomitant]
     Active Substance: PREDNISONE

REACTIONS (5)
  - Oral pain [Unknown]
  - Oropharyngeal pain [Unknown]
  - Pharyngeal swelling [Unknown]
  - Lip swelling [Unknown]
  - Mouth swelling [Unknown]

NARRATIVE: CASE EVENT DATE: 20240501
